FAERS Safety Report 8295976-9 (Version None)
Quarter: 2012Q2

REPORT INFORMATION
  Report Type: 
  Country: None (occurrence: None)
  Receive Date: 20120418
  Receipt Date: 20120131
  Transmission Date: 20120825
  Serious: No
  Sender: FDA-Public Use
  Company Number: US-GENERAMEDIX INC.-SFGC20120001

PATIENT
  Sex: Female

DRUGS (1)
  1. SODIUM FERRIC GLUCONATE COMPLEX IN SUCROSE [Suspect]
     Route: 041
     Dates: start: 20120131, end: 20120131

REACTIONS (2)
  - INFUSION SITE PAIN [None]
  - INFUSION SITE EXTRAVASATION [None]
